FAERS Safety Report 6945557-1 (Version None)
Quarter: 2010Q3

REPORT INFORMATION
  Report Type: 
  Country: None (occurrence: None)
  Receive Date: 20100827
  Receipt Date: 20100819
  Transmission Date: 20110219
  Serious: Yes (Other)
  Sender: FDA-Public Use
  Company Number: US-ROCHE-722908

PATIENT
  Sex: Female
  Weight: 81.6 kg

DRUGS (16)
  1. BONIVA [Suspect]
     Indication: BONE DENSITOMETRY
     Route: 048
     Dates: start: 20090101
  2. ALPRAZOLAM [Concomitant]
  3. NASONEX [Concomitant]
  4. FLUCONAZOLE [Concomitant]
  5. LIPITOR [Concomitant]
  6. HYDROCODONE BITARTRATE [Concomitant]
  7. APAP TAB [Concomitant]
  8. PHENERGAN [Concomitant]
  9. KLOR-CON [Concomitant]
  10. NEXIUM [Concomitant]
  11. SINGULAIR [Concomitant]
  12. VALTREX [Concomitant]
  13. MECLIZINE [Concomitant]
  14. NABUMETONE [Concomitant]
  15. LASIX [Concomitant]
  16. DAPSONE [Concomitant]

REACTIONS (2)
  - BLISTER [None]
  - ROTATOR CUFF SYNDROME [None]
